FAERS Safety Report 7071447-2 (Version None)
Quarter: 2010Q4

REPORT INFORMATION
  Report Type: 
  Country: None (occurrence: None)
  Receive Date: 20101029
  Receipt Date: 20090902
  Transmission Date: 20110411
  Serious: No
  Sender: FDA-Public Use
  Company Number: A0805682A

PATIENT
  Age: 79 Year
  Sex: Female

DRUGS (7)
  1. ADVAIR DISKUS 100/50 [Suspect]
     Indication: PRODUCT USED FOR UNKNOWN INDICATION
     Dosage: 1PUFF TWICE PER DAY
     Route: 055
  2. COZAAR [Concomitant]
  3. KLOR-CON [Concomitant]
  4. ROPINIROLE [Concomitant]
  5. TOPROL-XL [Concomitant]
  6. HYTRIN [Concomitant]
  7. BUMEX [Concomitant]

REACTIONS (2)
  - ALOPECIA [None]
  - HAIR COLOUR CHANGES [None]
